FAERS Safety Report 17758284 (Version 2)
Quarter: 2020Q2

REPORT INFORMATION
  Report Type: Spontaneous
  Country: US (occurrence: US)
  Receive Date: 20200507
  Receipt Date: 20200609
  Transmission Date: 20200714
  Serious: No
  Sender: FDA-Public Use
  Company Number: US-009507513-2004USA009351

PATIENT
  Sex: Female
  Weight: 86.62 kg

DRUGS (1)
  1. NEXPLANON [Suspect]
     Active Substance: ETONOGESTREL
     Indication: CONTRACEPTION
     Dosage: 1 DOSAGE FORM, LEFT ARM
     Route: 059
     Dates: start: 202001

REACTIONS (5)
  - Maternal exposure during pregnancy [Unknown]
  - Procedural pain [Unknown]
  - Implant site pain [Unknown]
  - Complication associated with device [Not Recovered/Not Resolved]
  - Product dose omission [Unknown]

NARRATIVE: CASE EVENT DATE: 202001
